FAERS Safety Report 20915775 (Version 1)
Quarter: 2022Q2

REPORT INFORMATION
  Report Type: Spontaneous
  Country: US (occurrence: US)
  Receive Date: 20220604
  Receipt Date: 20220604
  Transmission Date: 20220721
  Serious: No
  Sender: FDA-Public Use
  Company Number: US-SA-SAC20220530001505

PATIENT
  Sex: Female

DRUGS (6)
  1. DUPIXENT [Suspect]
     Active Substance: DUPILUMAB
     Indication: Dermatitis atopic
     Dosage: 300 MG, QOW
     Route: 058
     Dates: start: 20211005
  2. VITAMIN B12 [Concomitant]
     Active Substance: CYANOCOBALAMIN
  3. CHOLECALCIFEROL\FISH OIL [Concomitant]
     Active Substance: CHOLECALCIFEROL\FISH OIL
  4. LEVOTHYROXINE [Concomitant]
     Active Substance: LEVOTHYROXINE
  5. HERBALS [Concomitant]
     Active Substance: HERBALS
  6. AIRBORNE [Concomitant]
     Active Substance: HERBALS\MINERALS\VITAMINS

REACTIONS (2)
  - Injection site mass [Unknown]
  - Injection site erythema [Unknown]
